FAERS Safety Report 17224732 (Version 1)
Quarter: 2020Q1

REPORT INFORMATION
  Report Type: Spontaneous
  Country: US (occurrence: US)
  Receive Date: 20191231
  Receipt Date: 20191231
  Transmission Date: 20200409
  Serious: No
  Sender: FDA-Public Use
  Company Number: None

PATIENT
  Age: 74 Year
  Sex: Male
  Weight: 90 kg

DRUGS (6)
  1. MVI [Concomitant]
     Active Substance: VITAMINS
  2. PLAVIX [Concomitant]
     Active Substance: CLOPIDOGREL BISULFATE
  3. ASPIRIN. [Concomitant]
     Active Substance: ASPIRIN
  4. SINUTAB [Concomitant]
  5. ABIRATERONE. [Suspect]
     Active Substance: ABIRATERONE ACETATE
     Indication: PROSTATE CANCER
     Route: 048
  6. APAP [Concomitant]
     Active Substance: ACETAMINOPHEN

REACTIONS (1)
  - Disease progression [None]
